FAERS Safety Report 17179119 (Version 2)
Quarter: 2019Q4

REPORT INFORMATION
  Report Type: Spontaneous
  Country: FR (occurrence: FR)
  Receive Date: 20191219
  Receipt Date: 20191226
  Transmission Date: 20200122
  Serious: Yes (Life-Threatening, Other)
  Sender: FDA-Public Use
  Company Number: FR-MYLANLABS-2019M1126260

PATIENT

DRUGS (3)
  1. TEMOZOLOMIDE. [Suspect]
     Active Substance: TEMOZOLOMIDE
     Indication: OCULAR LYMPHOMA
     Dosage: 200 MG/M2, 5 DAYS PER MONTH
     Route: 048
  2. TEMOZOLOMIDE. [Suspect]
     Active Substance: TEMOZOLOMIDE
     Dosage: 750 MILLIGRAM/SQ. METER, MONTHLY (150 MG/M2, 5 DAYS/MONTH)
     Route: 048
  3. TEMOZOLOMIDE. [Suspect]
     Active Substance: TEMOZOLOMIDE
     Indication: MALIGNANT NEOPLASM OF RETINA
     Dosage: 150 MG/M2, 5 DAYS PER MONTH
     Route: 048

REACTIONS (2)
  - Haematotoxicity [Unknown]
  - Off label use [Unknown]
